FAERS Safety Report 8165848-9 (Version None)
Quarter: 2012Q1

REPORT INFORMATION
  Report Type: 
  Country: None (occurrence: None)
  Receive Date: 20120223
  Receipt Date: 20120223
  Transmission Date: 20120608
  Serious: Yes (Hospitalization)
  Sender: FDA-Public Use
  Company Number: None

PATIENT
  Age: 63 Year
  Sex: Male
  Weight: 64.1 kg

DRUGS (4)
  1. WARFARIN SODIUM [Suspect]
     Indication: PAIN
     Dosage: 3 OR 4 MG EVERY DAY PO  7.5 MG EVERY DAY PO
     Route: 048
     Dates: start: 19990419, end: 20120210
  2. WARFARIN SODIUM [Suspect]
     Indication: ATRIAL FIBRILLATION
     Dosage: 3 OR 4 MG EVERY DAY PO  7.5 MG EVERY DAY PO
     Route: 048
     Dates: start: 19990419, end: 20120210
  3. WARFARIN SODIUM [Suspect]
     Indication: PAIN
     Dosage: 3 OR 4 MG EVERY DAY PO  7.5 MG EVERY DAY PO
     Route: 048
     Dates: start: 20110225, end: 20120210
  4. WARFARIN SODIUM [Suspect]
     Indication: ATRIAL FIBRILLATION
     Dosage: 3 OR 4 MG EVERY DAY PO  7.5 MG EVERY DAY PO
     Route: 048
     Dates: start: 20110225, end: 20120210

REACTIONS (5)
  - GASTRIC HAEMORRHAGE [None]
  - HAEMOGLOBIN DECREASED [None]
  - DIZZINESS [None]
  - HAEMORRHAGE [None]
  - INTERNATIONAL NORMALISED RATIO INCREASED [None]
